FAERS Safety Report 20964130 (Version 2)
Quarter: 2022Q2

REPORT INFORMATION
  Report Type: Spontaneous
  Country: JP (occurrence: JP)
  Receive Date: 20220615
  Receipt Date: 20220617
  Transmission Date: 20220721
  Serious: Yes (Death, Other)
  Sender: FDA-Public Use
  Company Number: JP-PFIZER INC-202200819514

PATIENT
  Age: 65 Year
  Sex: Male

DRUGS (5)
  1. PACLITAXEL [Suspect]
     Active Substance: PACLITAXEL
     Indication: Oesophageal squamous cell carcinoma
     Dosage: 80 MG/M2, ON DAYS 1, 8, AND 15 PER CYCLE
  2. CISPLATIN [Suspect]
     Active Substance: CISPLATIN
     Indication: Oesophageal squamous cell carcinoma
     Dosage: 70 MG/M2, ON DAY 01
  3. CISPLATIN [Suspect]
     Active Substance: CISPLATIN
     Dosage: TWO ADDITIONAL CYCLES OF THE CHEMOTHERAPY REGIMEN DESCRIBED ABOVE WERE SUBSEQUENTLY ADMINISTERED
  4. FLUOROURACIL [Suspect]
     Active Substance: FLUOROURACIL
     Indication: Oesophageal squamous cell carcinoma
     Dosage: 700 MG/M2, ON DAY 1-5 PER CYCLE
  5. FLUOROURACIL [Suspect]
     Active Substance: FLUOROURACIL
     Dosage: TWO ADDITIONAL CYCLES OF THE CHEMOTHERAPY REGIMEN DESCRIBED ABOVE WERE SUBSEQUENTLY ADMINISTERED

REACTIONS (1)
  - Neoplasm progression [Fatal]
